FAERS Safety Report 10919090 (Version 1)
Quarter: 2015Q1

REPORT INFORMATION
  Report Type: Spontaneous
  Country: US (occurrence: None)
  Receive Date: 20150312
  Receipt Date: 20150312
  Transmission Date: 20150721
  Serious: Yes (Death)
  Sender: FDA-Public Use
  Company Number: INS201503-000073

PATIENT
  Age: 49 Year
  Sex: Male
  Weight: 95.25 kg

DRUGS (6)
  1. OMEPRAZOLE. [Concomitant]
     Active Substance: OMEPRAZOLE
  2. ZESTORETIC (LISINOPRIL HYDROCHLOROTHIAZIDE) [Concomitant]
  3. TRILIPIX (FENOFIBRIC ACID) [Concomitant]
  4. SUBSYS [Suspect]
     Active Substance: FENTANYL
     Indication: BREAKTHROUGH PAIN
     Dosage: UP TO 4 TIMES A DAY
     Dates: start: 20150205
  5. LANTUS [Concomitant]
     Active Substance: INSULIN GLARGINE
  6. METFORMIN [Concomitant]
     Active Substance: METFORMIN HYDROCHLORIDE

REACTIONS (1)
  - Tonsil cancer [None]

NARRATIVE: CASE EVENT DATE: 20150225
